FAERS Safety Report 4318329-4 (Version None)
Quarter: 2004Q1

REPORT INFORMATION
  Report Type: 
  Country: None (occurrence: None)
  Receive Date: 20040317
  Receipt Date: 20040310
  Transmission Date: 20041129
  Serious: Yes (Other)
  Sender: FDA-Public Use
  Company Number: WAES 0403USA00911

PATIENT
  Age: 51 Year
  Sex: Male
  Weight: 79 kg

DRUGS (8)
  1. ALLEGRA [Concomitant]
     Indication: HYPERSENSITIVITY
     Route: 048
  2. GLUCOTROL [Concomitant]
     Indication: DIABETES MELLITUS
     Route: 048
  3. LISINOPRIL [Concomitant]
     Indication: PROPHYLAXIS
     Route: 048
  4. MOBIC [Concomitant]
     Indication: BACK PAIN
     Route: 048
     Dates: start: 20030815, end: 20030829
  5. GLUCOPHAGE [Concomitant]
     Indication: DIABETES MELLITUS
     Route: 048
  6. VIOXX [Suspect]
     Indication: BACK PAIN
     Route: 048
     Dates: start: 20030819, end: 20030828
  7. VIOXX [Suspect]
     Route: 048
     Dates: start: 20030902, end: 20031202
  8. VIOXX [Suspect]
     Route: 048
     Dates: start: 20040101

REACTIONS (2)
  - MICROALBUMINURIA [None]
  - OEDEMA PERIPHERAL [None]
